FAERS Safety Report 8307498-7 (Version None)
Quarter: 2012Q2

REPORT INFORMATION
  Report Type: 
  Country: None (occurrence: None)
  Receive Date: 20120424
  Receipt Date: 20120418
  Transmission Date: 20120825
  Serious: Yes (Hospitalization)
  Sender: FDA-Public Use
  Company Number: PHHY2012FR033699

PATIENT
  Sex: Female

DRUGS (5)
  1. CALCIPRAT [Concomitant]
  2. ZOMIG [Concomitant]
     Indication: MIGRAINE
  3. RASILEZ [Suspect]
     Indication: HYPERTENSION
     Dosage: 1 DF, DAILY
     Dates: start: 20111201, end: 20120327
  4. IRBESARTAN [Concomitant]
  5. OMEPRAZOLE [Concomitant]

REACTIONS (1)
  - THROMBOCYTOPENIA [None]
